FAERS Safety Report 7546288-X (Version None)
Quarter: 2011Q2

REPORT INFORMATION
  Report Type: 
  Country: None (occurrence: None)
  Receive Date: 20110614
  Receipt Date: 20040526
  Transmission Date: 20111010
  Serious: Yes (Hospitalization)
  Sender: FDA-Public Use
  Company Number: PHFR2004IE01272

PATIENT
  Sex: Female

DRUGS (1)
  1. CLOZAPINE [Suspect]
     Indication: SCHIZOPHRENIA
     Dosage: 100 MG/DAY
     Route: 048
     Dates: start: 20040210, end: 20040303

REACTIONS (7)
  - MALAISE [None]
  - PNEUMONIA [None]
  - PLATELET COUNT DECREASED [None]
  - COMA [None]
  - LOWER RESPIRATORY TRACT INFECTION [None]
  - BODY TEMPERATURE INCREASED [None]
  - FULL BLOOD COUNT INCREASED [None]
